FAERS Safety Report 11795465 (Version 1)
Quarter: 2015Q4

REPORT INFORMATION
  Report Type: Spontaneous
  Country: US (occurrence: US)
  Receive Date: 20151202
  Receipt Date: 20151202
  Transmission Date: 20160305
  Serious: Yes (Hospitalization, Other)
  Sender: FDA-Public Use
  Company Number: US-DSJP-DSU-2015-118711

PATIENT

DRUGS (3)
  1. BENICAR [Suspect]
     Active Substance: OLMESARTAN MEDOXOMIL
     Indication: HYPERTENSION
     Dosage: 40 MG, QD
     Dates: start: 2004, end: 2014
  2. LOSARTAN POTASSIUM. [Concomitant]
     Active Substance: LOSARTAN POTASSIUM
     Indication: PRODUCT USED FOR UNKNOWN INDICATION
     Dosage: 50 MG, BID
     Dates: start: 2013
  3. BENICAR HCT [Suspect]
     Active Substance: HYDROCHLOROTHIAZIDE\OLMESARTAN MEDOXOMIL
     Indication: HYPERTENSION
     Dosage: 20/12.5 MG, QD
     Dates: start: 201401, end: 201404

REACTIONS (16)
  - Cerebrovascular accident [Unknown]
  - Malabsorption [Unknown]
  - Duodenal ulcer [Unknown]
  - Gastritis [Unknown]
  - Colitis ischaemic [Unknown]
  - Impaired gastric emptying [Unknown]
  - Erosive duodenitis [Unknown]
  - Dysphagia [Unknown]
  - Oesophageal stenosis [Unknown]
  - Depression [Unknown]
  - Haemangioma of liver [Unknown]
  - Chronic kidney disease [Unknown]
  - Acute kidney injury [Unknown]
  - Diverticulum intestinal [Unknown]
  - Nephrolithiasis [Unknown]
  - Dyspepsia [Unknown]

NARRATIVE: CASE EVENT DATE: 200407
